FAERS Safety Report 8006180-3 (Version None)
Quarter: 2011Q4

REPORT INFORMATION
  Report Type: 
  Country: None (occurrence: None)
  Receive Date: 20111226
  Receipt Date: 20111221
  Transmission Date: 20120403
  Serious: Yes (Death, Other)
  Sender: FDA-Public Use
  Company Number: PHHY2011US19680

PATIENT
  Sex: Male
  Weight: 198 kg

DRUGS (15)
  1. COQ10 [Concomitant]
     Dosage: 10 MG, UNK
  2. OMEPRAZOLE [Concomitant]
     Dosage: 20 MG, UNK
  3. METOPROLOL TARTRATE [Concomitant]
     Dosage: 25 MG, UNK
  4. ASPIRIN [Concomitant]
     Dosage: 81 MG, UNK
  5. TERAZOSIN HCL [Concomitant]
     Dosage: 1 MG, UNK
  6. CALCITRIOL [Concomitant]
     Dosage: 0.25 UG, UNK
  7. LOSARTAN POTASSIUM [Concomitant]
     Dosage: 50 MG, UNK
  8. VITAMIN B-12 [Concomitant]
     Dosage: 5000 UG, UNK
  9. GLEEVEC [Suspect]
     Indication: CHRONIC MYELOID LEUKAEMIA
     Dosage: 1 DF, QD
     Route: 048
     Dates: start: 20110208
  10. SPRYCEL [Concomitant]
     Dosage: UNK UKN, UNK
     Dates: start: 20111112
  11. MAGNESIUM [Concomitant]
     Dosage: 500 MG, UNK
  12. TRICOR [Concomitant]
     Dosage: 48 MG, UNK
  13. PROCHLORPERAZINE [Concomitant]
     Dosage: 10 MG
  14. CALCIUM [Concomitant]
     Dosage: UNK UKN, UNK
  15. VITAMIN B6 [Concomitant]
     Dosage: 50 MG, UNK

REACTIONS (9)
  - MUSCULOSKELETAL CHEST PAIN [None]
  - DEATH [None]
  - CHEST DISCOMFORT [None]
  - DEPRESSION [None]
  - BACK PAIN [None]
  - GASTROOESOPHAGEAL REFLUX DISEASE [None]
  - FATIGUE [None]
  - WHITE BLOOD CELL COUNT DECREASED [None]
  - DRUG INEFFECTIVE [None]
